FAERS Safety Report 9412208 (Version 4)
Quarter: 2014Q1

REPORT INFORMATION
  Report Type: Spontaneous
  Country: US (occurrence: None)
  Receive Date: 20130416
  Receipt Date: 20140210
  Transmission Date: 20141002
  Serious: Yes (Hospitalization)
  Sender: FDA-Public Use
  Company Number: ADR-2008-5221

PATIENT
  Age: 54 Year
  Sex: Male

DRUGS (1)
  1. LIORESAL [Suspect]
     Indication: MUSCLE SPASTICITY

REACTIONS (41)
  - Drug ineffective [None]
  - Overdose [None]
  - Hypertonia [None]
  - Hypotonia [None]
  - Respiratory disorder [None]
  - Insomnia [None]
  - Coma [None]
  - Muscle spasms [None]
  - Swelling [None]
  - Thrombosis [None]
  - Urinary tract infection [None]
  - Muscle atrophy [None]
  - Hypotension [None]
  - Drug withdrawal syndrome [None]
  - Lymphoedema [None]
  - Memory impairment [None]
  - Muscle spasms [None]
  - Depressed level of consciousness [None]
  - Oedema peripheral [None]
  - Perseveration [None]
  - Pruritus [None]
  - Cerebrovascular accident [None]
  - Arthralgia [None]
  - Hypoaesthesia oral [None]
  - Facial paresis [None]
  - Muscular weakness [None]
  - No therapeutic response [None]
  - Implant site swelling [None]
  - Device connection issue [None]
  - Device occlusion [None]
  - Local swelling [None]
  - Local swelling [None]
  - Device kink [None]
  - Device computer issue [None]
  - Product substitution issue [None]
  - Depressed level of consciousness [None]
  - Blood sodium decreased [None]
  - Hypotonia [None]
  - Muscular weakness [None]
  - Diplegia [None]
  - Tenderness [None]
